FAERS Safety Report 8311350-0 (Version None)
Quarter: 2012Q2

REPORT INFORMATION
  Report Type: 
  Country: None (occurrence: None)
  Receive Date: 20120425
  Receipt Date: 20120423
  Transmission Date: 20120825
  Serious: Yes (Hospitalization)
  Sender: FDA-Public Use
  Company Number: DE-GLAXOSMITHKLINE-D0075113A

PATIENT
  Age: 47 Year
  Sex: Male

DRUGS (2)
  1. AZILECT [Suspect]
     Indication: PARKINSON'S DISEASE
     Route: 065
     Dates: start: 20110201
  2. REQUIP [Suspect]
     Indication: PARKINSON'S DISEASE
     Dosage: 16MG PER DAY
     Route: 048
     Dates: start: 20110201

REACTIONS (5)
  - MULTIPLE SYSTEM ATROPHY [None]
  - HEAD DISCOMFORT [None]
  - DRUG INEFFECTIVE [None]
  - ERECTILE DYSFUNCTION [None]
  - URINARY RETENTION [None]
